FAERS Safety Report 14537728 (Version 1)
Quarter: 2018Q1

REPORT INFORMATION
  Report Type: Spontaneous
  Country: CA (occurrence: CA)
  Receive Date: 20180215
  Receipt Date: 20180215
  Transmission Date: 20180509
  Serious: Yes (Other)
  Sender: FDA-Public Use
  Company Number: CA-JNJFOC-20180211110

PATIENT
  Age: 59 Year
  Sex: Female

DRUGS (15)
  1. NORVASC [Concomitant]
     Active Substance: AMLODIPINE BESYLATE
     Route: 065
  2. COVERSYL [Concomitant]
     Active Substance: PERINDOPRIL
     Route: 065
  3. IMODIUM [Suspect]
     Active Substance: LOPERAMIDE HYDROCHLORIDE
     Route: 065
  4. ADVAGRAF [Concomitant]
     Active Substance: TACROLIMUS
     Indication: IMMUNOSUPPRESSION
     Route: 065
  5. BEXSERO [Concomitant]
     Active Substance: MENINGOCOCCAL GROUP B VACCINE
     Indication: PROPHYLAXIS
     Route: 065
  6. MAGNESIUM HYDROXIDE. [Concomitant]
     Active Substance: MAGNESIUM HYDROXIDE
     Route: 065
  7. CALCIUM CITRATE [Concomitant]
     Active Substance: CALCIUM CITRATE
     Route: 065
  8. IMMUNOGLOBULIN G HUMAN [Concomitant]
     Active Substance: HUMAN IMMUNOGLOBULIN G
     Route: 065
  9. MYCOPHENOLATE MOFETIL. [Concomitant]
     Active Substance: MYCOPHENOLATE MOFETIL
     Route: 065
  10. NOVO-GESIC [Concomitant]
     Route: 065
  11. ATORVASTATIN CALCIUM. [Concomitant]
     Active Substance: ATORVASTATIN CALCIUM
     Route: 065
  12. PREDNISONE. [Concomitant]
     Active Substance: PREDNISONE
     Route: 065
  13. SOLIRIS [Concomitant]
     Active Substance: ECULIZUMAB
     Indication: TRANSPLANT REJECTION
  14. IMODIUM [Suspect]
     Active Substance: LOPERAMIDE HYDROCHLORIDE
     Indication: PRODUCT USED FOR UNKNOWN INDICATION
     Route: 065
  15. APO-LORAZEPAM [Concomitant]
     Active Substance: LORAZEPAM
     Route: 065

REACTIONS (24)
  - Eye pruritus [Unknown]
  - Fatigue [Unknown]
  - Pyrexia [Unknown]
  - Eye swelling [Unknown]
  - Blood creatinine decreased [Unknown]
  - Ear pain [Unknown]
  - Acne [Unknown]
  - Renal impairment [Unknown]
  - Muscle spasms [Unknown]
  - Abdominal pain [Unknown]
  - Hypertension [Unknown]
  - Cough [Unknown]
  - Diarrhoea [Unknown]
  - Odynophagia [Unknown]
  - Flank pain [Unknown]
  - Glomerular filtration rate abnormal [Unknown]
  - Oropharyngeal pain [Unknown]
  - Swollen tongue [Unknown]
  - Mouth swelling [Unknown]
  - Headache [Unknown]
  - Off label use [Unknown]
  - Pharyngeal oedema [Unknown]
  - Lip swelling [Unknown]
  - Vomiting [Unknown]
